FAERS Safety Report 18068398 (Version 1)
Quarter: 2020Q3

REPORT INFORMATION
  Report Type: Spontaneous
  Country: CA (occurrence: CA)
  Receive Date: 20200724
  Receipt Date: 20200724
  Transmission Date: 20201103
  Serious: Yes (Life-Threatening, Other)
  Sender: FDA-Public Use
  Company Number: CA-ASTRAZENECA-2020SE87346

PATIENT
  Age: 17841 Day
  Sex: Male
  Weight: 90.7 kg

DRUGS (16)
  1. BRILINTA [Suspect]
     Active Substance: TICAGRELOR
     Indication: MYOCARDIAL INFARCTION
     Route: 048
     Dates: start: 20191229, end: 20200705
  2. TYLENOL WITH CODINE NO.3 [Concomitant]
     Dosage: AS REQUIRED
     Route: 065
  3. MINT?BISOPROLOL [Concomitant]
     Route: 065
  4. EZETROL [Concomitant]
     Active Substance: EZETIMIBE
     Route: 065
  5. PLAVIX [Concomitant]
     Active Substance: CLOPIDOGREL BISULFATE
     Indication: STENT PLACEMENT
     Route: 048
  6. ASPIRIN. [Concomitant]
     Active Substance: ASPIRIN
     Indication: STENT PLACEMENT
     Dosage: 81.0MG UNKNOWN
     Route: 048
  7. PERINDOPRIL ERBUMINE. [Concomitant]
     Active Substance: PERINDOPRIL ERBUMINE
     Route: 065
  8. JARDIANCE [Concomitant]
     Active Substance: EMPAGLIFLOZIN
     Route: 065
     Dates: start: 20190228, end: 20200610
  9. MINT?BISOPROLOL [Concomitant]
  10. SPIRONOLACTONE. [Concomitant]
     Active Substance: SPIRONOLACTONE
     Route: 065
  11. PLAVIX [Concomitant]
     Active Substance: CLOPIDOGREL BISULFATE
     Indication: STENT PLACEMENT
     Route: 048
     Dates: start: 20200707
  12. ASPIRIN. [Concomitant]
     Active Substance: ASPIRIN
     Indication: STENT PLACEMENT
     Route: 048
  13. PLAVIX [Concomitant]
     Active Substance: CLOPIDOGREL BISULFATE
     Indication: CORONARY ARTERY DISEASE
     Route: 048
  14. STEROID INJECTION IN ELBOW [Concomitant]
     Indication: HAEMORRHAGE
     Route: 065
     Dates: start: 202005
  15. PLAVIX [Concomitant]
     Active Substance: CLOPIDOGREL BISULFATE
     Indication: CORONARY ARTERY DISEASE
     Route: 048
     Dates: start: 20200707
  16. CRESTOR [Concomitant]
     Active Substance: ROSUVASTATIN CALCIUM
     Route: 065

REACTIONS (11)
  - Near death experience [Unknown]
  - Haemorrhage [Recovering/Resolving]
  - Chest pain [Unknown]
  - Anxiety [Recovered/Resolved]
  - Blood disorder [Not Recovered/Not Resolved]
  - Pyrexia [Recovering/Resolving]
  - Haemoptysis [Not Recovered/Not Resolved]
  - Haemarthrosis [Recovering/Resolving]
  - Bursitis [Unknown]
  - Gait disturbance [Unknown]
  - Dyspnoea [Unknown]

NARRATIVE: CASE EVENT DATE: 2020
